FAERS Safety Report 6695404-0 (Version None)
Quarter: 2010Q2

REPORT INFORMATION
  Report Type: 
  Country: None (occurrence: None)
  Receive Date: 20100422
  Receipt Date: 20100422
  Transmission Date: 20101027
  Serious: Yes (Other)
  Sender: FDA-Public Use
  Company Number: None

PATIENT

DRUGS (4)
  1. NITROGLYCERIN [Suspect]
     Indication: CHEST DISCOMFORT
     Dosage: ONE TABLET NONE TABLET
     Dates: start: 20050730
  2. NITROGLYCERIN [Suspect]
     Indication: PALPITATIONS
     Dosage: ONE TABLET NONE TABLET
     Dates: start: 20050730
  3. NITROGLYCERIN [Suspect]
     Indication: CHEST DISCOMFORT
     Dosage: ONE TABLET NONE TABLET
     Dates: start: 20050730
  4. NITROGLYCERIN [Suspect]
     Indication: PALPITATIONS
     Dosage: ONE TABLET NONE TABLET
     Dates: start: 20050730

REACTIONS (3)
  - BURNING SENSATION [None]
  - IMPAIRED HEALING [None]
  - PAIN [None]
